FAERS Safety Report 14632153 (Version 1)
Quarter: 2018Q1

REPORT INFORMATION
  Report Type: Spontaneous
  Country: US (occurrence: US)
  Receive Date: 20180313
  Receipt Date: 20180313
  Transmission Date: 20180509
  Serious: Yes (Hospitalization, Other)
  Sender: FDA-Public Use
  Company Number: US-ASTELLAS-2018US011610

PATIENT
  Age: 74 Year
  Sex: Male

DRUGS (7)
  1. TACROLIMUS. [Interacting]
     Active Substance: TACROLIMUS
     Indication: RENAL TRANSPLANT
     Dosage: UNK UNK, UNKNOWN FREQ. (DOSE WAS ADJUSTED TO ACHIEVE THERAPEUTIC PLASMA CONCENTRATION (5-7 NG/ML)
     Route: 065
  2. RIFAMPIN. [Interacting]
     Active Substance: RIFAMPIN
     Indication: DISSEMINATED TUBERCULOSIS
     Dosage: UNK UNK, UNKNOWN FREQ.
     Route: 065
  3. PREDNISONE. [Suspect]
     Active Substance: PREDNISONE
     Indication: LIVER TRANSPLANT
     Route: 065
  4. PREDNISONE. [Suspect]
     Active Substance: PREDNISONE
     Indication: RENAL TRANSPLANT
  5. MYCOPHENOLATE MOFETIL. [Suspect]
     Active Substance: MYCOPHENOLATE MOFETIL
     Indication: RENAL TRANSPLANT
  6. TACROLIMUS. [Suspect]
     Active Substance: TACROLIMUS
     Indication: LIVER TRANSPLANT
     Route: 065
  7. MYCOPHENOLATE MOFETIL. [Suspect]
     Active Substance: MYCOPHENOLATE MOFETIL
     Indication: LIVER TRANSPLANT
     Route: 065

REACTIONS (10)
  - Toxicity to various agents [Unknown]
  - Hypotension [Unknown]
  - Disseminated tuberculosis [Unknown]
  - Drug interaction [Unknown]
  - Hepatic cirrhosis [Unknown]
  - Immunosuppressant drug level decreased [Unknown]
  - Immune reconstitution inflammatory syndrome [Recovered/Resolved]
  - C-reactive protein increased [Recovered/Resolved]
  - End stage renal disease [Unknown]
  - Hepatitis C [Unknown]
